FAERS Safety Report 20732164 (Version 1)
Quarter: 2022Q2

REPORT INFORMATION
  Report Type: Spontaneous
  Country: ZA (occurrence: ZA)
  Receive Date: 20220420
  Receipt Date: 20220420
  Transmission Date: 20220721
  Serious: Yes (Hospitalization, Congenital Anomaly, Other)
  Sender: FDA-Public Use
  Company Number: ZA-HORMOSAN PHARMA GMBH-2022-05425

PATIENT
  Age: 32 Year
  Sex: Female

DRUGS (2)
  1. SILDENAFIL CITRATE [Suspect]
     Active Substance: SILDENAFIL CITRATE
     Indication: Hypertension
     Dosage: 50 MG
     Route: 048
     Dates: start: 202202
  2. OZEMPIC [Suspect]
     Active Substance: SEMAGLUTIDE
     Indication: Product used for unknown indication
     Dosage: 2 MG (INJECTION)
     Route: 065
     Dates: start: 202202

REACTIONS (3)
  - Heart disease congenital [Unknown]
  - Cardiac disorder [Unknown]
  - Respiratory disorder [Unknown]
